FAERS Safety Report 15848981 (Version 2)
Quarter: 2019Q1

REPORT INFORMATION
  Report Type: Spontaneous
  Country: DE (occurrence: DE)
  Receive Date: 20190121
  Receipt Date: 20190204
  Transmission Date: 20190417
  Serious: Yes (Hospitalization, Other)
  Sender: FDA-Public Use
  Company Number: DE-PFIZER INC-2019022737

PATIENT
  Age: 75 Year
  Sex: Female

DRUGS (1)
  1. XELJANZ [Suspect]
     Active Substance: TOFACITINIB CITRATE
     Indication: RHEUMATOID ARTHRITIS
     Dosage: UNK
     Dates: start: 201710

REACTIONS (6)
  - Neoplasm progression [Unknown]
  - Plasma cell myeloma [Unknown]
  - Spinal fracture [Unknown]
  - Back pain [Unknown]
  - Osteolysis [Unknown]
  - Depression [Unknown]

NARRATIVE: CASE EVENT DATE: 201810
